FAERS Safety Report 5419114-2 (Version None)
Quarter: 2007Q3

REPORT INFORMATION
  Report Type: 
  Country: None (occurrence: None)
  Receive Date: 20070816
  Receipt Date: 20070816
  Transmission Date: 20080115
  Serious: Yes (Life-Threatening, Hospitalization)
  Sender: FDA-Public Use
  Company Number: None

PATIENT
  Age: 49 Year
  Sex: Female
  Weight: 51.3 kg

DRUGS (3)
  1. FACTOR IX CONCENTRATE 2060 UNITS GRIFOLS USA [Suspect]
     Indication: HAEMORRHAGE
     Dosage: 2060 UNITS ONCE IV
     Route: 042
  2. FACTOR IX CONCENTRATE 2060 UNITS GRIFOLS USA [Suspect]
     Indication: INTERNATIONAL NORMALISED RATIO INCREASED
     Dosage: 2060 UNITS ONCE IV
     Route: 042
  3. AVASTIN [Suspect]
     Indication: COLON CANCER METASTATIC
     Dosage: IV
     Route: 042

REACTIONS (9)
  - CATHETER RELATED COMPLICATION [None]
  - HAEMODIALYSIS [None]
  - HAEMOGLOBIN DECREASED [None]
  - MICROANGIOPATHY [None]
  - OLIGURIA [None]
  - RED BLOOD CELL SCHISTOCYTES PRESENT [None]
  - RENAL FAILURE ACUTE [None]
  - RENAL TUBULAR NECROSIS [None]
  - THROMBOTIC THROMBOCYTOPENIC PURPURA [None]
